FAERS Safety Report 8283503-1 (Version None)
Quarter: 2012Q2

REPORT INFORMATION
  Report Type: 
  Country: None (occurrence: None)
  Receive Date: 20120413
  Receipt Date: 20120412
  Transmission Date: 20120825
  Serious: Yes (Death, Life-Threatening, Hospitalization)
  Sender: FDA-Public Use
  Company Number: PHHY2012GB030967

PATIENT
  Age: 65 Year
  Sex: Male
  Weight: 102 kg

DRUGS (10)
  1. GABAPENTIN [Suspect]
     Indication: NEURALGIA
     Dosage: 1 DF, THRICE IN TWO DAYS
     Route: 048
     Dates: start: 20120322, end: 20120331
  2. ATENOLOL [Concomitant]
  3. FELODIPINE [Suspect]
     Indication: HYPERTENSION
     Dosage: 5 MG, QD
     Route: 048
     Dates: start: 20120325, end: 20120331
  4. DOXYCYCLINE [Suspect]
     Indication: LOWER RESPIRATORY TRACT INFECTION
     Dosage: 100 MG, BID
     Route: 048
     Dates: start: 20120327, end: 20120331
  5. ACETAMINOPHEN [Concomitant]
  6. METFORMIN HCL [Concomitant]
  7. FUROSEMIDE [Concomitant]
  8. OMEPRAZOLE [Concomitant]
  9. CANDESARTAN CILEXETIL [Suspect]
     Indication: HYPERTENSION
     Dosage: 8 MG, BID
     Route: 048
     Dates: start: 20120322, end: 20120331
  10. HUMALOG [Concomitant]

REACTIONS (2)
  - RENAL FAILURE ACUTE [None]
  - HYPERKALAEMIA [None]
